FAERS Safety Report 15066256 (Version 1)
Quarter: 2018Q2

REPORT INFORMATION
  Report Type: Spontaneous
  Country: US (occurrence: US)
  Receive Date: 20180626
  Receipt Date: 20180626
  Transmission Date: 20180711
  Serious: No
  Sender: FDA-Public Use
  Company Number: US-GLAXOSMITHKLINE-US2018109083

PATIENT
  Age: 17 Year
  Sex: Female

DRUGS (4)
  1. NORLYDA [Concomitant]
     Active Substance: NORETHINDRONE
  2. TRAZODONE [Concomitant]
     Active Substance: TRAZODONE HYDROCHLORIDE
  3. LAMICTAL [Suspect]
     Active Substance: LAMOTRIGINE
     Indication: SEIZURE
  4. LAMICTAL [Suspect]
     Active Substance: LAMOTRIGINE
     Indication: AFFECTIVE DISORDER
     Dosage: 25 MG, UNK
     Dates: end: 20180614

REACTIONS (8)
  - Condition aggravated [Recovering/Resolving]
  - Lip discolouration [Recovering/Resolving]
  - Skin discolouration [Recovering/Resolving]
  - Aura [Recovering/Resolving]
  - Tremor [Recovering/Resolving]
  - Myopia [Recovering/Resolving]
  - Nausea [Recovering/Resolving]
  - Visual impairment [Recovering/Resolving]

NARRATIVE: CASE EVENT DATE: 20180614
